FAERS Safety Report 12451550 (Version 1)
Quarter: 2016Q2

REPORT INFORMATION
  Report Type: Spontaneous
  Country: CH (occurrence: DE)
  Receive Date: 20160609
  Receipt Date: 20160609
  Transmission Date: 20160815
  Serious: Yes (Other)
  Sender: FDA-Public Use
  Company Number: CH-LPDUSPRD-20160478

PATIENT
  Age: 57 Year
  Sex: Female
  Weight: 55 kg

DRUGS (1)
  1. FERINJECT [Suspect]
     Active Substance: FERRIC CARBOXYMALTOSE
     Dosage: 1000MG IN 100 ML NACL
     Route: 042
     Dates: start: 20160418, end: 20160418

REACTIONS (5)
  - Pallor [Unknown]
  - Nausea [Unknown]
  - Malaise [Unknown]
  - Unresponsive to stimuli [Unknown]
  - Pulse absent [Unknown]

NARRATIVE: CASE EVENT DATE: 20160418
